FAERS Safety Report 6167380-0 (Version None)
Quarter: 2009Q2

REPORT INFORMATION
  Report Type: 
  Country: None (occurrence: None)
  Receive Date: 20090424
  Receipt Date: 20090417
  Transmission Date: 20091009
  Serious: Yes (Life-Threatening)
  Sender: FDA-Public Use
  Company Number: AU-ABBOTT-09P-008-0569057-00

PATIENT
  Sex: Male
  Weight: 21 kg

DRUGS (3)
  1. IBUPROFEN TABLETS [Suspect]
     Indication: PYREXIA
     Dates: start: 20080607, end: 20080618
  2. DIMETAPP DAYTIME/NIGHTIME LIQUID CAPS [Suspect]
     Indication: UPPER RESPIRATORY TRACT INFECTION
     Dates: start: 20080617, end: 20080618
  3. PARACETAMOL [Concomitant]
     Indication: PYREXIA
     Dates: start: 20080617, end: 20080618

REACTIONS (7)
  - HYPOCALCAEMIA [None]
  - HYPOMAGNESAEMIA [None]
  - HYPONATRAEMIA [None]
  - HYPOPHOSPHATAEMIA [None]
  - KLEBSIELLA INFECTION [None]
  - LIVER FUNCTION TEST ABNORMAL [None]
  - STEVENS-JOHNSON SYNDROME [None]
